APPROVED DRUG PRODUCT: ADENOSINE
Active Ingredient: ADENOSINE
Strength: 90MG/30ML (3MG/ML)
Dosage Form/Route: SOLUTION;INTRAVENOUS
Application: A090450 | Product #002 | TE Code: AP
Applicant: RISING PHARMA HOLDINGS INC
Approved: Oct 2, 2014 | RLD: No | RS: No | Type: RX